FAERS Safety Report 9869958 (Version 2)
Quarter: 2014Q1

REPORT INFORMATION
  Report Type: Spontaneous
  Country: ES (occurrence: ES)
  Receive Date: 20140205
  Receipt Date: 20140217
  Transmission Date: 20141002
  Serious: Yes (Hospitalization)
  Sender: FDA-Public Use
  Company Number: ES-MERCK-1402ESP000965

PATIENT
  Age: 67 Year
  Sex: Female

DRUGS (8)
  1. RISTABEN [Suspect]
     Indication: DIABETES MELLITUS
     Dosage: UNK
     Route: 048
     Dates: start: 201304, end: 201306
  2. DIGOXIN [Concomitant]
  3. FUROSEMIDE [Concomitant]
     Route: 048
  4. BISOPROLOL [Concomitant]
  5. OLMETEC [Concomitant]
     Route: 048
  6. LANSOPRAZOLE [Concomitant]
  7. ATORVASTATIN CALCIUM [Concomitant]
  8. SINTROM [Concomitant]

REACTIONS (2)
  - Hypertriglyceridaemia [Recovered/Resolved]
  - Renal impairment [Recovered/Resolved]
